FAERS Safety Report 15558915 (Version 2)
Quarter: 2018Q4

REPORT INFORMATION
  Report Type: Spontaneous
  Country: DE (occurrence: DE)
  Receive Date: 20181029
  Receipt Date: 20181113
  Transmission Date: 20190205
  Serious: Yes (Death, Congenital Anomaly)
  Sender: FDA-Public Use
  Company Number: DE-UCBSA-2018046834

PATIENT
  Sex: Male

DRUGS (8)
  1. CANDESARTAN. [Suspect]
     Active Substance: CANDESARTAN
     Indication: HYPERTENSION
     Dosage: 16 MG, ONCE DAILY (QD)
     Route: 064
     Dates: start: 201710, end: 20171103
  2. FOLIC ACID. [Concomitant]
     Active Substance: FOLIC ACID
     Indication: PROPHYLAXIS
     Route: 064
  3. PAROXETIN [Suspect]
     Active Substance: PAROXETINE HYDROCHLORIDE
     Indication: DEPRESSION
     Dosage: 30 MG, ONCE DAILY (QD)
     Route: 064
     Dates: start: 201710, end: 20171103
  4. ESCITALOPRAM [Suspect]
     Active Substance: ESCITALOPRAM OXALATE
     Indication: DEPRESSION
     Dosage: 20 MG, ONCE DAILY (QD)
     Route: 064
     Dates: start: 20171103, end: 20171223
  5. CYTOTEC [Concomitant]
     Active Substance: MISOPROSTOL
     Indication: ABORTION INDUCED
     Dosage: UNK
     Route: 064
     Dates: start: 20171218, end: 20171223
  6. LEVETIRACETAM. [Suspect]
     Active Substance: LEVETIRACETAM
     Indication: EPILEPSY
     Dosage: 1500 MG, ONCE DAILY (QD)
     Route: 064
     Dates: start: 201710, end: 20171223
  7. NEPRESOL (DIHYDRALAZINE MESILATE) [Suspect]
     Active Substance: DIHYDRALAZINE MESYLATE
     Indication: HYPERTENSION
     Dosage: 25 MG, ONCE DAILY (QD)
     Route: 064
     Dates: start: 20171103, end: 20171223
  8. L-THYROXIN [Concomitant]
     Active Substance: LEVOTHYROXINE SODIUM
     Indication: AUTOIMMUNE THYROIDITIS
     Dosage: UNK
     Route: 064
     Dates: start: 201710, end: 20171223

REACTIONS (2)
  - Foetal exposure during pregnancy [Unknown]
  - Anencephaly [Fatal]

NARRATIVE: CASE EVENT DATE: 201710
